FAERS Safety Report 14555346 (Version 1)
Quarter: 2018Q1

REPORT INFORMATION
  Report Type: Spontaneous
  Country: US (occurrence: US)
  Receive Date: 20180220
  Receipt Date: 20180220
  Transmission Date: 20180509
  Serious: No
  Sender: FDA-Public Use
  Company Number: US-009507513-1801USA013310

PATIENT
  Age: 27 Year
  Sex: Female

DRUGS (4)
  1. EROMYCIN [Concomitant]
     Active Substance: ERYTHROMYCIN ESTOLATE
  2. NEXPLANON [Suspect]
     Active Substance: ETONOGESTREL
     Indication: CONTRACEPTION
     Dosage: 1 ROD / 3 YEARS
     Route: 059
     Dates: start: 20171030
  3. WELLBUTRIN [Concomitant]
     Active Substance: BUPROPION HYDROCHLORIDE
  4. NEXPLANON [Suspect]
     Active Substance: ETONOGESTREL
     Dosage: 1 ROD / 3 YEARS
     Route: 059
     Dates: start: 201410, end: 20171030

REACTIONS (5)
  - Device deployment issue [Recovered/Resolved]
  - Implant site irritation [Recovered/Resolved]
  - Implant site erythema [Unknown]
  - Complication of device removal [Recovered/Resolved]
  - Implant site swelling [Unknown]

NARRATIVE: CASE EVENT DATE: 20171030
